FAERS Safety Report 18732558 (Version 11)
Quarter: 2021Q2

REPORT INFORMATION
  Report Type: Spontaneous
  Country: US (occurrence: US)
  Receive Date: 20210112
  Receipt Date: 20210520
  Transmission Date: 20210717
  Serious: Yes (Other)
  Sender: FDA-Public Use
  Company Number: US-JNJFOC-A-US2018-178788

PATIENT
  Age: 43 Year
  Sex: Female
  Weight: 115.32 kg

DRUGS (26)
  1. UPTRAVI [Suspect]
     Active Substance: SELEXIPAG
     Route: 048
  2. ORENITRAM [Suspect]
     Active Substance: TREPROSTINIL
     Dosage: 9.5 UNK
     Route: 048
  3. ORENITRAM [Suspect]
     Active Substance: TREPROSTINIL
     Route: 048
     Dates: start: 20191008
  4. OPSUMIT [Suspect]
     Active Substance: MACITENTAN
     Dosage: 10 MG, QD
     Route: 048
     Dates: start: 20180831
  5. ORENITRAM [Suspect]
     Active Substance: TREPROSTINIL
     Dosage: DECREASE TO 6 MG TID; PATIENT WEANING OFF ORENITRAM TO UPTRAVI
     Route: 048
     Dates: start: 20201212
  6. GABAPENTIN. [Suspect]
     Active Substance: GABAPENTIN
     Route: 065
  7. UPTRAVI [Suspect]
     Active Substance: SELEXIPAG
     Indication: PULMONARY ARTERIAL HYPERTENSION
     Route: 048
  8. OPSUMIT [Suspect]
     Active Substance: MACITENTAN
     Dosage: UNK
     Route: 048
     Dates: start: 20180903
  9. ORENITRAM [Suspect]
     Active Substance: TREPROSTINIL
     Dosage: 1 MG, UNK
     Route: 048
  10. UPTRAVI [Suspect]
     Active Substance: SELEXIPAG
     Route: 048
  11. OPSUMIT [Suspect]
     Active Substance: MACITENTAN
     Indication: PULMONARY ARTERIAL HYPERTENSION
     Dosage: 10 MG, QD
     Route: 048
     Dates: start: 20180921
  12. ORENITRAM [Suspect]
     Active Substance: TREPROSTINIL
     Route: 048
  13. AMBRISENTAN [Suspect]
     Active Substance: AMBRISENTAN
     Indication: PULMONARY HYPERTENSION
     Route: 048
     Dates: start: 20191008
  14. UPTRAVI [Suspect]
     Active Substance: SELEXIPAG
     Route: 048
     Dates: start: 20201220
  15. UPTRAVI [Suspect]
     Active Substance: SELEXIPAG
     Dosage: 1000 MCG IN THE AM AND 1200 MCG IN THE PM
     Route: 048
     Dates: start: 202103
  16. ORENITRAM [Suspect]
     Active Substance: TREPROSTINIL
     Route: 048
  17. ORENITRAM [Suspect]
     Active Substance: TREPROSTINIL
     Route: 048
  18. GABAPENTIN. [Suspect]
     Active Substance: GABAPENTIN
     Indication: PRODUCT USED FOR UNKNOWN INDICATION
     Route: 065
  19. UPTRAVI [Suspect]
     Active Substance: SELEXIPAG
     Route: 048
  20. AMBRISENTAN [Suspect]
     Active Substance: AMBRISENTAN
     Indication: PULMONARY ARTERIAL HYPERTENSION
  21. SILDENAFIL. [Concomitant]
     Active Substance: SILDENAFIL
     Dosage: 20 MG, TID
     Dates: start: 20180831
  22. UPTRAVI [Suspect]
     Active Substance: SELEXIPAG
     Route: 048
     Dates: start: 20201125
  23. UPTRAVI [Suspect]
     Active Substance: SELEXIPAG
     Route: 048
     Dates: end: 202103
  24. UPTRAVI [Suspect]
     Active Substance: SELEXIPAG
     Route: 048
  25. ORENITRAM [Suspect]
     Active Substance: TREPROSTINIL
     Indication: PULMONARY HYPERTENSION
     Dosage: 0.75 MG, UNK
     Route: 048
     Dates: start: 20190808
  26. LETAIRIS [Suspect]
     Active Substance: AMBRISENTAN
     Indication: PULMONARY ARTERIAL HYPERTENSION
     Route: 048
     Dates: start: 20191008

REACTIONS (44)
  - Intestinal obstruction [Not Recovered/Not Resolved]
  - Nasal congestion [Unknown]
  - Flushing [Recovering/Resolving]
  - Illness [Unknown]
  - Skin ulcer [Not Recovered/Not Resolved]
  - Constipation [Unknown]
  - Back pain [Not Recovered/Not Resolved]
  - Diarrhoea [Recovering/Resolving]
  - Pain in jaw [Not Recovered/Not Resolved]
  - Abdominal pain upper [Not Recovered/Not Resolved]
  - Nausea [Recovering/Resolving]
  - Vomiting [Unknown]
  - Arthralgia [Unknown]
  - Fluid retention [Unknown]
  - Abdominal distension [Not Recovered/Not Resolved]
  - Oropharyngeal pain [Unknown]
  - Flatulence [Unknown]
  - Initial insomnia [Not Recovered/Not Resolved]
  - Dizziness postural [Not Recovered/Not Resolved]
  - Arthralgia [Recovering/Resolving]
  - Pain in extremity [Not Recovered/Not Resolved]
  - Headache [Recovering/Resolving]
  - Pain [Recovering/Resolving]
  - Myalgia [Not Recovered/Not Resolved]
  - Cough [Unknown]
  - Irritability [Not Recovered/Not Resolved]
  - Dyspnoea at rest [Recovering/Resolving]
  - Vertigo [Unknown]
  - Faeces hard [Not Recovered/Not Resolved]
  - Pollakiuria [Unknown]
  - Oedema [Not Recovered/Not Resolved]
  - Wheezing [Recovered/Resolved]
  - Weight decreased [Not Recovered/Not Resolved]
  - Energy increased [Unknown]
  - Thinking abnormal [Unknown]
  - Migraine [Unknown]
  - Oedema [Not Recovered/Not Resolved]
  - Dyspnoea exertional [Not Recovered/Not Resolved]
  - Dizziness [Recovering/Resolving]
  - Pulmonary arterial hypertension [Unknown]
  - Weight increased [Unknown]
  - Epistaxis [Unknown]
  - Sinusitis [Not Recovered/Not Resolved]
  - Flushing [Not Recovered/Not Resolved]

NARRATIVE: CASE EVENT DATE: 201809
